FAERS Safety Report 13953204 (Version 1)
Quarter: 2017Q3

REPORT INFORMATION
  Report Type: Report from Study
  Country: US (occurrence: US)
  Receive Date: 20170911
  Receipt Date: 20170911
  Transmission Date: 20171128
  Serious: No
  Sender: FDA-Public Use
  Company Number: US-AMGEN-USASL2017135974

PATIENT
  Sex: Male

DRUGS (1)
  1. ENBREL [Suspect]
     Active Substance: ETANERCEPT
     Indication: PSORIASIS
     Dosage: UNK MG, QWK
     Route: 065

REACTIONS (4)
  - Injection site erythema [Unknown]
  - Injection site warmth [Unknown]
  - Drug effect incomplete [Unknown]
  - Injection site pruritus [Unknown]
